FAERS Safety Report 4829809-7 (Version None)
Quarter: 2005Q4

REPORT INFORMATION
  Report Type: 
  Country: None (occurrence: None)
  Receive Date: 20051115
  Receipt Date: 20051115
  Transmission Date: 20060501
  Serious: Yes (Hospitalization)
  Sender: FDA-Public Use
  Company Number: None

PATIENT
  Sex: Male
  Weight: 127.9144 kg

DRUGS (6)
  1. TERAZOSIN 5MG [Suspect]
     Indication: MICTURITION DISORDER
     Dosage: 5MG DAILY AT BEDTIME PO
     Route: 048
  2. WARFARIN [Concomitant]
  3. SIMVASTATIN [Concomitant]
  4. LISINOPRIL [Concomitant]
  5. FINASTERIDE [Concomitant]
  6. CARVEDILOL [Concomitant]

REACTIONS (1)
  - HYPERTENSION [None]
